FAERS Safety Report 24625463 (Version 1)
Quarter: 2024Q4

REPORT INFORMATION
  Report Type: Spontaneous
  Country: US (occurrence: US)
  Receive Date: 20241115
  Receipt Date: 20241115
  Transmission Date: 20250114
  Serious: Yes (Hospitalization)
  Sender: ABBVIE
  Company Number: US-ABBVIE-6004578

PATIENT

DRUGS (1)
  1. SKYRIZI [Suspect]
     Active Substance: RISANKIZUMAB-RZAA
     Indication: Product used for unknown indication
     Route: 042
     Dates: start: 2024

REACTIONS (3)
  - Hospitalisation [Recovered/Resolved]
  - Feeling abnormal [Unknown]
  - Illness [Unknown]

NARRATIVE: CASE EVENT DATE: 20240101
